FAERS Safety Report 4311810-3 (Version None)
Quarter: 2004Q1

REPORT INFORMATION
  Report Type: 
  Country: None (occurrence: None)
  Receive Date: 20040302
  Receipt Date: 20040109
  Transmission Date: 20041129
  Serious: No
  Sender: FDA-Public Use
  Company Number: 200410540BWH

PATIENT
  Age: 70 Year
  Sex: Male
  Weight: 81.1939 kg

DRUGS (2)
  1. LEVITRA [Suspect]
     Indication: ERECTILE DYSFUNCTION
     Dosage: 10 MG, PRN, ORAL; SEE IMAGE
     Route: 048
     Dates: start: 20031229
  2. LEVITRA [Suspect]
     Indication: ERECTILE DYSFUNCTION
     Dosage: 10 MG, PRN, ORAL; SEE IMAGE
     Route: 048
     Dates: start: 20040105

REACTIONS (2)
  - EPISTAXIS [None]
  - ERECTILE DYSFUNCTION [None]
